FAERS Safety Report 6388626-X (Version None)
Quarter: 2009Q4

REPORT INFORMATION
  Report Type: 
  Country: None (occurrence: None)
  Receive Date: 20091005
  Receipt Date: 20090929
  Transmission Date: 20100525
  Serious: Yes (Life-Threatening, Other)
  Sender: FDA-Public Use
  Company Number: CA-NAPPMUNDI-GBR-2009-0005630

PATIENT
  Age: 66 Year
  Sex: Female

DRUGS (1)
  1. MORPHINE SULFATE [Suspect]
     Indication: POSTOPERATIVE ANALGESIA
     Route: 065

REACTIONS (2)
  - RESPIRATORY ARREST [None]
  - SLEEP APNOEA SYNDROME [None]
